FAERS Safety Report 9304017 (Version 1)
Quarter: 2013Q2

REPORT INFORMATION
  Report Type: Spontaneous
  Country: GB (occurrence: GB)
  Receive Date: 20130522
  Receipt Date: 20130522
  Transmission Date: 20140414
  Serious: Yes (Disabling)
  Sender: FDA-Public Use
  Company Number: PHHY2013GB049432

PATIENT
  Age: 43 Year
  Sex: Female
  Weight: 63.5 kg

DRUGS (5)
  1. HYDROCORTISONE [Concomitant]
     Dates: start: 20130429, end: 20130506
  2. METRONIDAZOLE [Suspect]
     Dosage: 1 DF, QD
     Dates: start: 20130429
  3. LEVOTHYROXINE [Concomitant]
     Dates: start: 20130115, end: 20130501
  4. ESTRADOT [Concomitant]
     Dates: start: 20130121, end: 20130319
  5. HYDROXOCOBALAMIN [Concomitant]
     Dates: start: 20130325, end: 20130326

REACTIONS (3)
  - Acute psychosis [Not Recovered/Not Resolved]
  - Feeling abnormal [Not Recovered/Not Resolved]
  - Psychotic disorder [Not Recovered/Not Resolved]
